FAERS Safety Report 7397723-1 (Version None)
Quarter: 2011Q2

REPORT INFORMATION
  Report Type: 
  Country: None (occurrence: None)
  Receive Date: 20110406
  Receipt Date: 20110329
  Transmission Date: 20111010
  Serious: Yes (Hospitalization)
  Sender: FDA-Public Use
  Company Number: DE-EISAI INC-E2020-08823-SPO-DE

PATIENT
  Age: 87 Year
  Sex: Male

DRUGS (1)
  1. ARICEPT [Suspect]
     Dosage: UNKNOWN
     Route: 048
     Dates: start: 20110201, end: 20110318

REACTIONS (6)
  - HALLUCINATION [None]
  - AGGRESSION [None]
  - FATIGUE [None]
  - MUSCLE SPASMS [None]
  - VOMITING [None]
  - WITHDRAWAL SYNDROME [None]
